FAERS Safety Report 8503701-9 (Version None)
Quarter: 2012Q3

REPORT INFORMATION
  Report Type: 
  Country: None (occurrence: None)
  Receive Date: 20120711
  Receipt Date: 20120625
  Transmission Date: 20120928
  Serious: Yes (Life-Threatening, Hospitalization, Disabling)
  Sender: FDA-Public Use
  Company Number: US-JNJFOC-20120613254

PATIENT
  Sex: Male
  Weight: 105.2 kg

DRUGS (4)
  1. MERCAPTOPURINE [Concomitant]
     Indication: CROHN'S DISEASE
  2. CLARITIN [Concomitant]
     Indication: PREMEDICATION
     Dates: start: 20100308
  3. INFLIXIMAB, RECOMBINANT [Suspect]
     Indication: CROHN'S DISEASE
     Route: 042
     Dates: start: 20100308
  4. ACETAMINOPHEN [Concomitant]
     Indication: PREMEDICATION
     Dates: start: 20100308

REACTIONS (1)
  - GUILLAIN-BARRE SYNDROME [None]
